FAERS Safety Report 11135528 (Version 1)
Quarter: 2015Q2

REPORT INFORMATION
  Report Type: Spontaneous
  Country: US (occurrence: None)
  Receive Date: 20150522
  Receipt Date: 20150522
  Transmission Date: 20150821
  Serious: Yes (Disabling)
  Sender: FDA-Public Use
  Company Number: None

PATIENT
  Age: 44 Year
  Sex: Female
  Weight: 62.6 kg

DRUGS (4)
  1. CHANTIX [Suspect]
     Active Substance: VARENICLINE TARTRATE
     Route: 048
     Dates: start: 20150515, end: 20150519
  2. VICODIN [Concomitant]
     Active Substance: ACETAMINOPHEN\HYDROCODONE BITARTRATE
  3. ZOLOFT [Concomitant]
     Active Substance: SERTRALINE HYDROCHLORIDE
  4. METATOPOROLOL [Concomitant]

REACTIONS (7)
  - Faeces discoloured [None]
  - Abdominal discomfort [None]
  - Pain [None]
  - Dysgeusia [None]
  - Paranoia [None]
  - Oropharyngeal pain [None]
  - Flatulence [None]

NARRATIVE: CASE EVENT DATE: 20150515
